FAERS Safety Report 21678165 (Version 2)
Quarter: 2022Q4

REPORT INFORMATION
  Report Type: Spontaneous
  Country: US (occurrence: US)
  Receive Date: 20221203
  Receipt Date: 20221227
  Transmission Date: 20230112
  Serious: No
  Sender: FDA-Public Use
  Company Number: US-AMGEN-USASP2022202688

PATIENT
  Age: 79 Year
  Sex: Female
  Weight: 64.036 kg

DRUGS (6)
  1. REPATHA [Suspect]
     Active Substance: EVOLOCUMAB
     Indication: Hypercholesterolaemia
     Dosage: 140 MILLIGRAM
     Route: 065
     Dates: start: 20220916
  2. FARXIGA [Concomitant]
     Active Substance: DAPAGLIFLOZIN PROPANEDIOL
     Dosage: 10 MILLIGRAM, QD
  3. COREG [Concomitant]
     Active Substance: CARVEDILOL
     Dosage: 6.25 MILLIGRAM, BID
  4. ENTRESTO [Concomitant]
     Active Substance: SACUBITRIL\VALSARTAN
     Dosage: 24 OR 26 MILLIGRAM, BID
     Dates: start: 20220916
  5. ALDACTONE [Concomitant]
     Active Substance: SPIRONOLACTONE
     Dosage: 25 MILLIGRAM, QD
  6. ASPIRIN [Concomitant]
     Active Substance: ASPIRIN
     Dosage: 81 MILLIGRAM, QD

REACTIONS (4)
  - Device difficult to use [Unknown]
  - COVID-19 [Unknown]
  - Hiatus hernia [Unknown]
  - Incorrect dose administered by device [Unknown]

NARRATIVE: CASE EVENT DATE: 20221001
